FAERS Safety Report 7045693-8 (Version None)
Quarter: 2010Q4

REPORT INFORMATION
  Report Type: 
  Country: None (occurrence: None)
  Receive Date: 20101014
  Receipt Date: 20101004
  Transmission Date: 20110411
  Serious: Yes (Other)
  Sender: FDA-Public Use
  Company Number: FR-GENENTECH-307665

PATIENT
  Age: 64 Year
  Sex: Female

DRUGS (1)
  1. MABTHERA [Suspect]
     Indication: CONNECTIVE TISSUE INFLAMMATION
     Dosage: UNK
     Route: 042

REACTIONS (1)
  - INTERSTITIAL LUNG DISEASE [None]
